FAERS Safety Report 9175100 (Version 3)
Quarter: 2013Q2

REPORT INFORMATION
  Report Type: Report from Study
  Country: CA (occurrence: CA)
  Receive Date: 20130320
  Receipt Date: 20130513
  Transmission Date: 20140414
  Serious: Yes (Other)
  Sender: FDA-Public Use
  Company Number: CA-JNJFOC-20130307446

PATIENT
  Sex: Male
  Weight: 86.18 kg

DRUGS (5)
  1. SIMPONI [Suspect]
     Indication: RHEUMATOID ARTHRITIS
     Route: 058
     Dates: start: 20120116, end: 20130115
  2. SULFASALAZINE [Concomitant]
     Route: 065
  3. PREDNISONE [Concomitant]
     Route: 065
  4. VITAMIN C [Concomitant]
     Route: 065
  5. VITAMIN D [Concomitant]
     Route: 065

REACTIONS (6)
  - Lower respiratory tract inflammation [Unknown]
  - Lung disorder [Unknown]
  - Pulmonary mass [Unknown]
  - Neoplasm malignant [Unknown]
  - Drug effect decreased [Unknown]
  - Rheumatoid arthritis [Unknown]
